FAERS Safety Report 11438115 (Version 1)
Quarter: 2015Q3

REPORT INFORMATION
  Report Type: Spontaneous
  Country: CA (occurrence: CA)
  Receive Date: 20150901
  Receipt Date: 20150901
  Transmission Date: 20151125
  Serious: Yes (Other)
  Sender: FDA-Public Use
  Company Number: CA-ROCHE-1627758

PATIENT
  Age: 55 Year
  Sex: Male

DRUGS (10)
  1. LAMIVUDINE. [Interacting]
     Active Substance: LAMIVUDINE
     Indication: HEPATITIS C
     Route: 065
  2. TENOFOVIR [Interacting]
     Active Substance: TENOFOVIR
     Indication: HEPATITIS C
     Route: 065
  3. MYCOPHENOLATE MOFETIL. [Interacting]
     Active Substance: MYCOPHENOLATE MOFETIL
     Indication: IMMUNOSUPPRESSION
     Route: 065
  4. ATAZANAVIR [Interacting]
     Active Substance: ATAZANAVIR
     Indication: HEPATITIS C
     Route: 065
  5. SOFOSBUVIR [Interacting]
     Active Substance: SOFOSBUVIR
     Indication: HEPATITIS C
     Route: 065
  6. RIBAVIRIN. [Interacting]
     Active Substance: RIBAVIRIN
     Route: 065
  7. RIBAVIRIN. [Interacting]
     Active Substance: RIBAVIRIN
     Route: 065
  8. SIMEPREVIR [Interacting]
     Active Substance: SIMEPREVIR
     Indication: HEPATITIS C
     Route: 065
  9. CICLOSPORIN [Interacting]
     Active Substance: CYCLOSPORINE
     Indication: IMMUNOSUPPRESSION
     Route: 065
  10. RIBAVIRIN. [Suspect]
     Active Substance: RIBAVIRIN
     Indication: HEPATITIS C
     Route: 065

REACTIONS (5)
  - Drug interaction [Unknown]
  - Cholestasis [Unknown]
  - Gastrointestinal disorder [Unknown]
  - Hepatitis C [Unknown]
  - Drug ineffective [Unknown]
